FAERS Safety Report 8596214-X (Version None)
Quarter: 2012Q3

REPORT INFORMATION
  Report Type: 
  Country: None (occurrence: None)
  Receive Date: 20120815
  Receipt Date: 20120808
  Transmission Date: 20120928
  Serious: Yes (Other)
  Sender: FDA-Public Use
  Company Number: NL-GLAXOSMITHKLINE-B0820688A

PATIENT
  Sex: Female
  Weight: 70 kg

DRUGS (6)
  1. ZOVIRAX [Suspect]
     Indication: ENCEPHALITIS VIRAL
     Dosage: 900MG THREE TIMES PER DAY
     Route: 042
     Dates: start: 20120725, end: 20120730
  2. ACETYLSALICYLZUUR [Concomitant]
     Dosage: 100MG PER DAY
     Route: 042
     Dates: start: 20120729
  3. ENOXAPARIN SODIUM [Concomitant]
     Dosage: 40MG PER DAY
     Route: 058
     Dates: start: 20120729
  4. NEXIUM [Concomitant]
     Dosage: 40MG PER DAY
     Route: 042
     Dates: start: 20120729
  5. KEPPRA [Concomitant]
     Dosage: 250MG TWICE PER DAY
     Route: 048
     Dates: start: 20120730
  6. DIPRIVAN [Concomitant]
     Route: 042
     Dates: start: 20120728

REACTIONS (1)
  - RENAL FAILURE [None]
